FAERS Safety Report 6046365-9 (Version None)
Quarter: 2009Q1

REPORT INFORMATION
  Report Type: 
  Country: None (occurrence: None)
  Receive Date: 20090121
  Receipt Date: 20090121
  Transmission Date: 20090719
  Serious: Yes (Hospitalization)
  Sender: FDA-Public Use
  Company Number: None

PATIENT
  Age: 61 Year
  Sex: Male

DRUGS (1)
  1. IOVERSOL [Suspect]
     Indication: DIAGNOSTIC PROCEDURE
     Dosage: UD ML ONCE IV
     Route: 042
     Dates: start: 20081218, end: 20081218

REACTIONS (5)
  - CONTRAST MEDIA REACTION [None]
  - DYSPNOEA [None]
  - PARAESTHESIA [None]
  - PRURITUS [None]
  - URTICARIA [None]
